FAERS Safety Report 12626060 (Version 2)
Quarter: 2016Q3

REPORT INFORMATION
  Report Type: Spontaneous
  Country: None (occurrence: US)
  Receive Date: 20160805
  Receipt Date: 20160808
  Transmission Date: 20161109
  Serious: No
  Sender: FDA-Public Use
  Company Number: US-LNK INTERNATIONAL, INC.-1055917

PATIENT
  Sex: Female

DRUGS (1)
  1. MECLIZINE HCL 25 MG CHEWABLE TABLETS [Suspect]
     Active Substance: MECLIZINE HYDROCHLORIDE
     Indication: VERTIGO

REACTIONS (4)
  - Mental disorder [None]
  - Seizure [None]
  - Hallucination, visual [None]
  - Hallucination [None]
